FAERS Safety Report 23017711 (Version 1)
Quarter: 2023Q4

REPORT INFORMATION
  Report Type: Spontaneous
  Country: SE (occurrence: SE)
  Receive Date: 20231003
  Receipt Date: 20231003
  Transmission Date: 20240110
  Serious: Yes (Life-Threatening, Hospitalization, Disabling)
  Sender: FDA-Public Use
  Company Number: None

PATIENT
  Age: 24 Year
  Sex: Female
  Weight: 58 kg

DRUGS (3)
  1. SERTRALINE HYDROCHLORIDE [Suspect]
     Active Substance: SERTRALINE HYDROCHLORIDE
     Indication: Mixed anxiety and depressive disorder
     Dosage: 1/2 TABLETT I EN VECKA VAR LAKARENS UTSKRIFT SEDAN TRAPPA UPP, TOG DET 1 DAG
     Dates: start: 20230514, end: 20230514
  2. NAPROXEN [Concomitant]
     Active Substance: NAPROXEN
     Dosage: 1 GANG BARA
     Dates: start: 20230514, end: 20230514
  3. NEXPLANON [Concomitant]
     Active Substance: ETONOGESTREL
     Dates: start: 20230414, end: 20230529

REACTIONS (16)
  - Heart rate increased [Unknown]
  - Pain [Recovering/Resolving]
  - Personality change [Unknown]
  - General physical condition abnormal [Recovering/Resolving]
  - Hair growth abnormal [Recovered/Resolved]
  - Vascular pain [Recovering/Resolving]
  - Hypertension [Unknown]
  - Diarrhoea [Recovering/Resolving]
  - Angina pectoris [Recovering/Resolving]
  - Amenorrhoea [Recovered/Resolved]
  - Electric shock sensation [Recovering/Resolving]
  - Nausea [Recovered/Resolved]
  - Headache [Recovering/Resolving]
  - Panic attack [Recovered/Resolved]
  - Eye haemorrhage [Not Recovered/Not Resolved]
  - Psychiatric symptom [Unknown]

NARRATIVE: CASE EVENT DATE: 20230514
